FAERS Safety Report 4844152-8 (Version None)
Quarter: 2005Q4

REPORT INFORMATION
  Report Type: 
  Country: None (occurrence: None)
  Receive Date: 20051202
  Receipt Date: 20051122
  Transmission Date: 20060501
  Serious: Yes (Life-Threatening)
  Sender: FDA-Public Use
  Company Number: US-SANOFI-SYNTHELABO-A03200503867

PATIENT
  Sex: Male
  Weight: 79.36 kg

DRUGS (11)
  1. PLAVIX [Suspect]
     Indication: COAGULOPATHY
     Route: 048
     Dates: end: 20050701
  2. ALTACE [Concomitant]
     Dosage: UNK
     Route: 048
  3. IMDUR [Concomitant]
     Dosage: UNK
     Route: 048
  4. ADVAIR DISKUS 100/50 [Concomitant]
     Dosage: UNK
     Route: 055
  5. SPIRIVA [Concomitant]
     Dosage: UNK
     Route: 065
  6. ARICEPT [Concomitant]
     Dosage: UNK
     Route: 048
  7. NAMENDA [Concomitant]
     Dosage: UNK
     Route: 048
  8. NEXIUM [Concomitant]
     Dosage: UNK
     Route: 048
  9. VYTORIN [Concomitant]
     Dosage: UNK
     Route: 048
  10. COREG [Concomitant]
     Dosage: UNK
     Route: 048
  11. NITROGLYCERIN [Concomitant]
     Dosage: UNK
     Route: 062

REACTIONS (1)
  - CARDIAC ARREST [None]
